FAERS Safety Report 15022300 (Version 1)
Quarter: 2018Q2

REPORT INFORMATION
  Report Type: Report from Study
  Country: DE (occurrence: DE)
  Receive Date: 20180618
  Receipt Date: 20180618
  Transmission Date: 20180711
  Serious: Yes (Hospitalization, Other)
  Sender: FDA-Public Use
  Company Number: DE-IPSEN BIOPHARMACEUTICALS, INC.-2018-00875

PATIENT
  Age: 71 Year
  Sex: Male
  Weight: 75 kg

DRUGS (13)
  1. GRANISETRON [Concomitant]
     Active Substance: GRANISETRON
  2. ALOXI [Concomitant]
     Active Substance: PALONOSETRON HYDROCHLORIDE
  3. ERBITUX [Suspect]
     Active Substance: CETUXIMAB
     Indication: COLORECTAL CANCER METASTATIC
     Route: 042
     Dates: start: 20161227, end: 20161227
  4. FOLINIC ACID [Suspect]
     Active Substance: LEUCOVORIN
     Indication: COLORECTAL CANCER METASTATIC
     Route: 042
     Dates: start: 20161227, end: 20170411
  5. ERBITUX [Suspect]
     Active Substance: CETUXIMAB
     Route: 042
     Dates: start: 20161227, end: 20170102
  6. RANITIC [Concomitant]
     Active Substance: RANITIDINE HYDROCHLORIDE
  7. ERBITUX [Suspect]
     Active Substance: CETUXIMAB
     Route: 042
     Dates: start: 20170103, end: 20170103
  8. ERBITUX [Suspect]
     Active Substance: CETUXIMAB
     Route: 042
     Dates: start: 20170104, end: 20170411
  9. FENISTIL [Concomitant]
     Active Substance: DIMETHINDENE
  10. PARACETAMOL [Concomitant]
     Active Substance: ACETAMINOPHEN
  11. PEGYLATED LIPOSOMAL IRINOTECAN [Suspect]
     Active Substance: IRINOTECAN HYDROCHLORIDE
     Indication: COLORECTAL CANCER METASTATIC
     Dosage: 180 MG/ M2
     Route: 042
     Dates: start: 20161227, end: 20161228
  12. 5-FLUOROURACIL [Suspect]
     Active Substance: FLUOROURACIL
     Indication: COLORECTAL CANCER METASTATIC
     Route: 042
     Dates: start: 20161227, end: 20170411
  13. PEGYLATED LIPOSOMAL IRINOTECAN [Suspect]
     Active Substance: IRINOTECAN HYDROCHLORIDE
     Indication: OFF LABEL USE

REACTIONS (11)
  - Medical device implantation [Recovered/Resolved]
  - Off label use [Unknown]
  - Inflammatory marker increased [Recovered/Resolved]
  - Overdose [Unknown]
  - Staphylococcal bacteraemia [Unknown]
  - Blood culture positive [Unknown]
  - Pyrexia [Recovered/Resolved]
  - Chills [Recovered/Resolved]
  - Infection [Recovered/Resolved]
  - Staphylococcus test positive [Unknown]
  - Implant site infection [Recovered/Resolved]

NARRATIVE: CASE EVENT DATE: 2017
